FAERS Safety Report 10574431 (Version 2)
Quarter: 2014Q4

REPORT INFORMATION
  Report Type: Spontaneous
  Country: US (occurrence: US)
  Receive Date: 20141110
  Receipt Date: 20141210
  Transmission Date: 20150529
  Serious: Yes (Other)
  Sender: FDA-Public Use
  Company Number: US-ROXANE LABORATORIES, INC.-2014-RO-01723RO

PATIENT
  Age: 8 Year
  Sex: Female

DRUGS (1)
  1. OXCARBAZEPINE. [Suspect]
     Active Substance: OXCARBAZEPINE
     Indication: SEIZURE
     Dosage: 450 MG
     Route: 065

REACTIONS (3)
  - Anticonvulsant drug level below therapeutic [Unknown]
  - Product quality issue [Unknown]
  - Electroencephalogram abnormal [Unknown]
